FAERS Safety Report 20717778 (Version 4)
Quarter: 2022Q2

REPORT INFORMATION
  Report Type: Report from Study
  Country: FR (occurrence: FR)
  Receive Date: 20220417
  Receipt Date: 20220607
  Transmission Date: 20220721
  Serious: Yes (Hospitalization, Disabling, Other)
  Sender: FDA-Public Use
  Company Number: FR-ABBVIE-22K-056-4359530-00

PATIENT
  Age: 74 Year
  Sex: Female

DRUGS (2)
  1. CARBIDOPA\LEVODOPA [Suspect]
     Active Substance: CARBIDOPA\LEVODOPA
     Indication: Parkinson^s disease
     Route: 050
     Dates: start: 202007
  2. CARBIDOPA\LEVODOPA [Suspect]
     Active Substance: CARBIDOPA\LEVODOPA

REACTIONS (10)
  - Psychiatric decompensation [Not Recovered/Not Resolved]
  - Prolapse [Unknown]
  - Abnormal behaviour [Unknown]
  - Device difficult to use [Unknown]
  - Hallucination [Unknown]
  - Neuralgia [Not Recovered/Not Resolved]
  - Cognitive disorder [Unknown]
  - Intentional medical device removal by patient [Recovered/Resolved]
  - Pulmonary embolism [Unknown]
  - Weight decreased [Unknown]

NARRATIVE: CASE EVENT DATE: 20220101
